FAERS Safety Report 15476581 (Version 1)
Quarter: 2018Q4

REPORT INFORMATION
  Report Type: Report from Study
  Country: RU (occurrence: RU)
  Receive Date: 20181009
  Receipt Date: 20181009
  Transmission Date: 20190205
  Serious: Yes (Hospitalization)
  Sender: FDA-Public Use
  Company Number: RU-ASTRAZENECA-2018SE85114

PATIENT
  Age: 75 Year
  Sex: Female
  Weight: 90 kg

DRUGS (6)
  1. DUSPATALIN [Concomitant]
     Active Substance: MEBEVERINE HYDROCHLORIDE
  2. TRIMETAZIDINE [Concomitant]
     Active Substance: TRIMETAZIDINE
  3. INSULIN [Concomitant]
     Active Substance: INSULIN NOS
  4. LORISTA [Concomitant]
     Active Substance: LOSARTAN POTASSIUM
  5. GLUCOPHAGE [Concomitant]
     Active Substance: METFORMIN HYDROCHLORIDE
  6. FORXIGA [Suspect]
     Active Substance: DAPAGLIFLOZIN
     Indication: TYPE 2 DIABETES MELLITUS
     Route: 048
     Dates: start: 20180420

REACTIONS (4)
  - Pruritus genital [Recovered/Resolved]
  - Renal colic [Unknown]
  - Product use issue [Unknown]
  - Genital burning sensation [Recovered/Resolved]

NARRATIVE: CASE EVENT DATE: 201805
